FAERS Safety Report 8555553-9 (Version None)
Quarter: 2012Q3

REPORT INFORMATION
  Report Type: 
  Country: None (occurrence: None)
  Receive Date: 20120731
  Receipt Date: 20111201
  Transmission Date: 20120928
  Serious: No
  Sender: FDA-Public Use
  Company Number: US-ASTRAZENECA-2010SE35034

PATIENT
  Age: 52 Year
  Sex: Male
  Weight: 77.1 kg

DRUGS (13)
  1. SEROQUEL [Suspect]
     Indication: NIGHTMARE
     Route: 048
     Dates: start: 20050101
  2. CLONAZOPAM [Concomitant]
     Indication: INSOMNIA
  3. SEROQUEL [Suspect]
     Route: 048
     Dates: start: 20050101
  4. SEROQUEL [Suspect]
     Route: 048
     Dates: start: 20050101
  5. SEROQUEL [Suspect]
     Route: 048
     Dates: start: 20050101
  6. MELOXIC [Concomitant]
     Indication: PROSTATIC DISORDER
  7. SEROQUEL [Suspect]
     Route: 048
     Dates: start: 20050101
  8. SEROQUEL [Suspect]
     Route: 048
     Dates: start: 20050101
  9. SEROQUEL [Suspect]
     Indication: POST-TRAUMATIC STRESS DISORDER
     Route: 048
     Dates: start: 20050101
  10. SEROQUEL [Suspect]
     Indication: SCHIZOPHRENIA
     Route: 048
     Dates: start: 20050101
  11. SEROQUEL [Suspect]
     Indication: ABNORMAL DREAMS
     Route: 048
     Dates: start: 20050101
  12. SEROQUEL [Suspect]
     Indication: BIPOLAR DISORDER
     Route: 048
     Dates: start: 20050101
  13. DOXAZOSIN MESYLATE [Concomitant]
     Indication: INTERVERTEBRAL DISC DISORDER

REACTIONS (9)
  - VOMITING [None]
  - NAUSEA [None]
  - APHAGIA [None]
  - MALAISE [None]
  - OFF LABEL USE [None]
  - DIARRHOEA [None]
  - HOT FLUSH [None]
  - INSOMNIA [None]
  - DRUG DOSE OMISSION [None]
